FAERS Safety Report 24845146 (Version 2)
Quarter: 2025Q1

REPORT INFORMATION
  Report Type: Spontaneous
  Country: IT (occurrence: IT)
  Receive Date: 20250115
  Receipt Date: 20250319
  Transmission Date: 20250409
  Serious: Yes (Other)
  Sender: AMGEN
  Company Number: IT-AMGEN-ITASP2025005058

PATIENT
  Age: 31 Year
  Sex: Female

DRUGS (5)
  1. EVOLOCUMAB [Suspect]
     Active Substance: EVOLOCUMAB
     Indication: Type IIa hyperlipidaemia
     Dosage: 420 MILLIGRAM, Q2WK
     Route: 058
  2. EVOLOCUMAB [Suspect]
     Active Substance: EVOLOCUMAB
     Indication: Lipids increased
  3. DEXTRAN [Concomitant]
     Active Substance: DEXTRAN
  4. CELLULOSE [Concomitant]
     Active Substance: POWDERED CELLULOSE
  5. LOMITAPIDE [Concomitant]
     Active Substance: LOMITAPIDE
     Dosage: 30 MILLIGRAM, QD

REACTIONS (12)
  - Aortic valve incompetence [Unknown]
  - Pericardial effusion [Unknown]
  - Pulmonary valve incompetence [Unknown]
  - Mitral valve incompetence [Unknown]
  - Tricuspid valve incompetence [Unknown]
  - Gestational diabetes [Unknown]
  - Presyncope [Recovered/Resolved]
  - Maternal exposure during pregnancy [Unknown]
  - Arteriosclerosis [Unknown]
  - Hypotension [Recovered/Resolved]
  - Mitral valve prolapse [Unknown]
  - Nausea [Recovered/Resolved]
